FAERS Safety Report 8875972 (Version 1)
Quarter: 2012Q4

REPORT INFORMATION
  Report Type: 
  Country: US (occurrence: US)
  Receive Date: 20121030
  Receipt Date: 20121030
  Transmission Date: 20130627
  Serious: Yes (Hospitalization)
  Sender: FDA-Public Use
  Company Number: PHHY2012US095197

PATIENT
  Age: 12 Year
  Sex: Female

DRUGS (1)
  1. MINOCYCLINE [Suspect]
     Indication: ACNE

REACTIONS (15)
  - Optic atrophy [Recovering/Resolving]
  - Blood pressure decreased [Recovering/Resolving]
  - Intracranial pressure increased [Recovering/Resolving]
  - Headache [Recovering/Resolving]
  - Nausea [Recovering/Resolving]
  - Malaise [Recovering/Resolving]
  - Visual impairment [Recovering/Resolving]
  - Blindness [Recovering/Resolving]
  - Visual acuity reduced [Recovering/Resolving]
  - Pupillary reflex impaired [Recovering/Resolving]
  - VIIth nerve paralysis [Recovering/Resolving]
  - Papilloedema [Recovering/Resolving]
  - Disorder of globe [Recovering/Resolving]
  - Retinal exudates [Recovering/Resolving]
  - Papillary muscle haemorrhage [Recovering/Resolving]
